FAERS Safety Report 15046224 (Version 1)
Quarter: 2018Q2

REPORT INFORMATION
  Report Type: Spontaneous
  Country: FR (occurrence: FR)
  Receive Date: 20180621
  Receipt Date: 20180621
  Transmission Date: 20180711
  Serious: Yes (Hospitalization)
  Sender: FDA-Public Use
  Company Number: FR-TEVA-2018-FR-911824

PATIENT
  Age: 69 Year
  Sex: Female
  Weight: 77 kg

DRUGS (7)
  1. IRBESARTAN. [Suspect]
     Active Substance: IRBESARTAN
     Indication: SUICIDE ATTEMPT
     Route: 048
     Dates: start: 20180331, end: 20180331
  2. SIMVASTATIN. [Suspect]
     Active Substance: SIMVASTATIN
     Indication: SUICIDE ATTEMPT
     Route: 048
     Dates: start: 20180331, end: 20180331
  3. TENORMINE 50 MG, COMPRIM? PELLICUL? S?CABLE [Suspect]
     Active Substance: ATENOLOL
     Indication: SUICIDE ATTEMPT
     Route: 048
     Dates: start: 20180331, end: 20180331
  4. STILNOX 10 MG, COMPRIM? PELLICUL? S?CABLE [Suspect]
     Active Substance: ZOLPIDEM TARTRATE
     Indication: SUICIDE ATTEMPT
     Route: 048
     Dates: start: 20180331, end: 20180331
  5. FEMARA 2,5 MG, COMPRIM? PELLICUL? [Concomitant]
     Indication: SUICIDE ATTEMPT
     Route: 048
     Dates: start: 20180331, end: 20180331
  6. EUTHYROX 50 MICROGRAMMES COMPRIM?S [Concomitant]
     Indication: SUICIDE ATTEMPT
     Route: 048
     Dates: start: 20180331, end: 20180331
  7. UVEDOSE 100 000 UI, SOLUTION BUVABLE EN AMPOULE [Concomitant]
     Active Substance: CHOLECALCIFEROL

REACTIONS (5)
  - Renal failure [Recovered/Resolved]
  - Suicide attempt [None]
  - Sinus bradycardia [Recovered/Resolved]
  - Hypotension [Recovered/Resolved]
  - Chronic kidney disease [None]

NARRATIVE: CASE EVENT DATE: 20180403
